FAERS Safety Report 8583934-6 (Version None)
Quarter: 2012Q3

REPORT INFORMATION
  Report Type: 
  Country: None (occurrence: None)
  Receive Date: 20120810
  Receipt Date: 20120803
  Transmission Date: 20120928
  Serious: Yes (Hospitalization, Other)
  Sender: FDA-Public Use
  Company Number: US-009507513-2011SP046642

PATIENT

DRUGS (1)
  1. NUVARING [Suspect]
     Indication: CONTRACEPTION
     Dates: start: 20040101, end: 20061104

REACTIONS (9)
  - DEPRESSION [None]
  - DEEP VEIN THROMBOSIS [None]
  - ABORTION SPONTANEOUS [None]
  - ANXIETY [None]
  - PULMONARY EMBOLISM [None]
  - PHYSICAL ASSAULT [None]
  - GONORRHOEA [None]
  - INSOMNIA [None]
  - MENTAL DISORDER [None]
